FAERS Safety Report 6240592-3 (Version None)
Quarter: 2009Q2

REPORT INFORMATION
  Report Type: 
  Country: None (occurrence: None)
  Receive Date: 20090623
  Receipt Date: 20081211
  Transmission Date: 20091009
  Serious: No
  Sender: FDA-Public Use
  Company Number: US-ASTRAZENECA-2008UW23205

PATIENT
  Age: 53 Year
  Sex: Female
  Weight: 63.5 kg

DRUGS (4)
  1. PULMICORT FLEXHALER [Suspect]
     Indication: ASTHMA
     Dosage: 180 MCG, 1 PUFF TWICE DAILY
     Route: 055
     Dates: start: 20050101
  2. PULMICORT FLEXHALER [Suspect]
     Indication: HYPERSENSITIVITY
     Dosage: 180 MCG, 1 PUFF TWICE DAILY
     Route: 055
     Dates: start: 20050101
  3. PREMARIN [Concomitant]
  4. SINGULAIR [Concomitant]

REACTIONS (6)
  - DIZZINESS [None]
  - DYSPHAGIA [None]
  - HEADACHE [None]
  - MALAISE [None]
  - NAUSEA [None]
  - PALPITATIONS [None]
